FAERS Safety Report 26025670 (Version 1)
Quarter: 2025Q4

REPORT INFORMATION
  Report Type: Spontaneous
  Country: EU (occurrence: EU)
  Receive Date: 20251111
  Receipt Date: 20251111
  Transmission Date: 20260118
  Serious: Yes (Other)
  Sender: RANBAXY
  Company Number: EU-SUN PHARMACEUTICAL INDUSTRIES LTD-2025RR-534521

PATIENT
  Age: 27 Year
  Sex: Female

DRUGS (1)
  1. SUMATRIPTAN [Suspect]
     Active Substance: SUMATRIPTAN
     Indication: Product used for unknown indication
     Dosage: SUMATRIPTAN 3 MG/0.5 ML INJECTION SOLUTION IN PREFILLED PEN, 6 PENS
     Route: 065

REACTIONS (3)
  - Emotional poverty [Unknown]
  - Hypoaesthesia [Unknown]
  - Discomfort [Unknown]
